FAERS Safety Report 12263678 (Version 9)
Quarter: 2018Q4

REPORT INFORMATION
  Report Type: Report from Study
  Country: CA (occurrence: CA)
  Receive Date: 20160413
  Receipt Date: 20181225
  Transmission Date: 20190204
  Serious: Yes (Hospitalization)
  Sender: FDA-Public Use
  Company Number: PHHY2014CA133055

PATIENT
  Age: 60 Year
  Sex: Female

DRUGS (8)
  1. GLEEVEC [Suspect]
     Active Substance: IMATINIB MESYLATE
     Indication: CHRONIC MYELOID LEUKAEMIA
     Dosage: 400 MG, QD
     Route: 048
     Dates: start: 20140627
  2. CADUET [Concomitant]
     Active Substance: AMLODIPINE BESYLATE\ATORVASTATIN CALCIUM
     Indication: PRODUCT USED FOR UNKNOWN INDICATION
     Dosage: 5 MG/4 MG, QAM
     Route: 065
  3. TEAR-GEL [Concomitant]
     Indication: PRODUCT USED FOR UNKNOWN INDICATION
     Dosage: UNK, PRN
     Route: 065
  4. POLYSPORIN DROPS [Concomitant]
     Indication: PRODUCT USED FOR UNKNOWN INDICATION
     Dosage: UNK
     Route: 065
  5. REFRESH [Concomitant]
     Active Substance: UNSPECIFIED INGREDIENT
     Indication: PRODUCT USED FOR UNKNOWN INDICATION
     Dosage: UNK, TID (PRN)
     Route: 065
  6. METFORMIN [Concomitant]
     Active Substance: METFORMIN HYDROCHLORIDE
     Indication: PRODUCT USED FOR UNKNOWN INDICATION
     Dosage: 500 MG, TID
     Route: 065
  7. GLYBURIDE. [Concomitant]
     Active Substance: GLYBURIDE
     Indication: PRODUCT USED FOR UNKNOWN INDICATION
     Dosage: 2.5 MG, BID
     Route: 065
  8. MAGNESIUM [Concomitant]
     Active Substance: MAGNESIUM
     Indication: PRODUCT USED FOR UNKNOWN INDICATION
     Route: 065

REACTIONS (35)
  - Feeding disorder [Unknown]
  - Inner ear disorder [Unknown]
  - Erythema [Unknown]
  - Ligament sprain [Unknown]
  - Abdominal pain upper [Unknown]
  - Nausea [Recovering/Resolving]
  - Increased upper airway secretion [Unknown]
  - Lacrimation increased [Unknown]
  - Blood glucose increased [Unknown]
  - Diarrhoea [Unknown]
  - Decreased appetite [Unknown]
  - Fall [Unknown]
  - Mood swings [Unknown]
  - Fatigue [Unknown]
  - Nasal congestion [Unknown]
  - Vomiting [Unknown]
  - Insomnia [Unknown]
  - Cough [Recovering/Resolving]
  - Eye discharge [Unknown]
  - Nasopharyngitis [Recovering/Resolving]
  - Arthralgia [Unknown]
  - Dyspepsia [Unknown]
  - Feeling hot [Unknown]
  - Food intolerance [Unknown]
  - Therapeutic response unexpected [Unknown]
  - Conjunctivitis [Unknown]
  - Dry skin [Unknown]
  - Asthenia [Unknown]
  - Dizziness [Unknown]
  - Upper limb fracture [Unknown]
  - Loss of consciousness [Unknown]
  - Abnormal dreams [Unknown]
  - Somnolence [Unknown]
  - Reflux gastritis [Unknown]
  - Headache [Recovering/Resolving]

NARRATIVE: CASE EVENT DATE: 20160305
